FAERS Safety Report 5751827-5 (Version None)
Quarter: 2008Q2

REPORT INFORMATION
  Report Type: 
  Country: None (occurrence: None)
  Receive Date: 20080527
  Receipt Date: 20080508
  Transmission Date: 20081010
  Serious: Yes (Death)
  Sender: FDA-Public Use
  Company Number: 2008AL004044

PATIENT
  Age: 84 Year
  Sex: Male

DRUGS (2)
  1. DIGOXIN                   (AMIDE) [Suspect]
     Indication: CARDIAC DISORDER
     Dosage: 0.125MG DAILY PO
     Route: 048
  2. COUMADIN [Concomitant]

REACTIONS (1)
  - DEATH [None]
